FAERS Safety Report 4631329-X (Version None)
Quarter: 2005Q2

REPORT INFORMATION
  Report Type: 
  Country: None (occurrence: None)
  Receive Date: 20050406
  Receipt Date: 20050321
  Transmission Date: 20051028
  Serious: No
  Sender: FDA-Public Use
  Company Number: USA050189247

PATIENT
  Age: 16 Year
  Sex: Female

DRUGS (2)
  1. STRATTERA [Suspect]
     Indication: ATTENTION DEFICIT/HYPERACTIVITY DISORDER
     Dosage: 43 MG/1 DAY
     Dates: start: 20401122, end: 20050101
  2. MINOCYCLINE HCL [Concomitant]

REACTIONS (7)
  - ABDOMINAL DISTENSION [None]
  - ALANINE AMINOTRANSFERASE INCREASED [None]
  - ASPARTATE AMINOTRANSFERASE INCREASED [None]
  - DEPRESSION [None]
  - FATIGUE [None]
  - HEPATIC ENZYME INCREASED [None]
  - NAUSEA [None]
